FAERS Safety Report 9753047 (Version 1)
Quarter: 2013Q4

REPORT INFORMATION
  Report Type: Spontaneous
  Country: US (occurrence: US)
  Receive Date: 20131213
  Receipt Date: 20131213
  Transmission Date: 20140711
  Serious: No
  Sender: FDA-Public Use
  Company Number: US-GILEAD-2009-0026200

PATIENT
  Sex: Female
  Weight: 61.69 kg

DRUGS (7)
  1. LETAIRIS [Suspect]
     Indication: PULMONARY ARTERIAL HYPERTENSION
     Dates: start: 20090901
  2. OXYGEN [Concomitant]
  3. DULCOLAX [Concomitant]
  4. SYMBICORT [Concomitant]
  5. KLOR-CON [Concomitant]
  6. TRIAMTERENE-HCTZ [Concomitant]
  7. PROAIR HFA [Concomitant]

REACTIONS (1)
  - Hot flush [Unknown]
